FAERS Safety Report 9939922 (Version 1)
Quarter: 2014Q1

REPORT INFORMATION
  Report Type: Spontaneous
  Country: US (occurrence: US)
  Receive Date: 20140303
  Receipt Date: 20140303
  Transmission Date: 20141002
  Serious: No
  Sender: FDA-Public Use
  Company Number: US-009507513-1403USA000574

PATIENT
  Age: 33 Year
  Sex: Female

DRUGS (4)
  1. CLARITIN REDITABS [Suspect]
     Indication: SEASONAL ALLERGY
     Dosage: 10 MG, QD
     Route: 048
     Dates: start: 20140110, end: 20140127
  2. CLARITIN REDITABS [Suspect]
     Indication: RHINORRHOEA
  3. CLARITIN REDITABS [Suspect]
     Indication: EYE PRURITUS
  4. CLARITIN REDITABS [Suspect]
     Indication: THROAT IRRITATION

REACTIONS (1)
  - Drug ineffective [Unknown]
